FAERS Safety Report 9305049 (Version 1)
Quarter: 2013Q2

REPORT INFORMATION
  Report Type: Spontaneous
  Country: US (occurrence: US)
  Receive Date: 20130523
  Receipt Date: 20130523
  Transmission Date: 20140414
  Serious: No
  Sender: FDA-Public Use
  Company Number: US-009507513-1305USA011149

PATIENT
  Sex: Female

DRUGS (5)
  1. NUVARING [Suspect]
     Indication: CONTRACEPTION
     Dosage: UNK
     Route: 067
     Dates: start: 201205, end: 201209
  2. SERTRALINE HYDROCHLORIDE [Concomitant]
  3. ZOLPIDEM TARTRATE [Concomitant]
  4. DICLOFENAC [Concomitant]
  5. ALBUTEROL [Concomitant]

REACTIONS (3)
  - Medical device discomfort [Recovered/Resolved]
  - Device expulsion [Unknown]
  - Product quality issue [Unknown]
